FAERS Safety Report 14633991 (Version 2)
Quarter: 2018Q1

REPORT INFORMATION
  Report Type: Spontaneous
  Country: US (occurrence: US)
  Receive Date: 20180314
  Receipt Date: 20180327
  Transmission Date: 20180509
  Serious: Yes (Hospitalization, Other)
  Sender: FDA-Public Use
  Company Number: US-ROCHE-2082816

PATIENT
  Age: 66 Year
  Sex: Female
  Weight: 90.71 kg

DRUGS (21)
  1. INSULIN [Concomitant]
     Active Substance: INSULIN NOS
     Dosage: 0.3 ML HALF UNIT 31 GUAGE AND ULT-FINE 0.3 ML 31 GUAGE
     Route: 065
  2. DULOXETINE. [Concomitant]
     Active Substance: DULOXETINE
     Route: 065
  3. ESOMEPRAZOLE MAGNESIUM. [Concomitant]
     Active Substance: ESOMEPRAZOLE MAGNESIUM
     Route: 048
  4. MIRTAZAPINE. [Concomitant]
     Active Substance: MIRTAZAPINE
     Dosage: ONE TAB AT BEDTIME
     Route: 048
  5. NIFEDIPINE. [Concomitant]
     Active Substance: NIFEDIPINE
     Dosage: ONE TAB ONE TIME DAILY
     Route: 048
  6. ALBUTEROL/IPRATROPIUM [Concomitant]
     Active Substance: ALBUTEROL\IPRATROPIUM
  7. LOVASTATIN. [Concomitant]
     Active Substance: LOVASTATIN
     Dosage: 1 TAB NIGHT AT BEDTIME
     Route: 048
  8. MONTELUKAST [Concomitant]
     Active Substance: MONTELUKAST SODIUM
     Route: 048
  9. FISH OIL [Concomitant]
     Active Substance: FISH OIL
     Route: 065
  10. LORAZEPAM. [Concomitant]
     Active Substance: LORAZEPAM
     Indication: ANXIETY
     Dosage: ONE TAB TID
     Route: 048
  11. TAMIFLU [Suspect]
     Active Substance: OSELTAMIVIR PHOSPHATE
     Indication: INFLUENZA
     Route: 048
     Dates: start: 2018
  12. TAMIFLU [Suspect]
     Active Substance: OSELTAMIVIR PHOSPHATE
     Route: 048
     Dates: start: 20180129, end: 20180203
  13. ASPIRIN. [Concomitant]
     Active Substance: ASPIRIN
     Dosage: WITH FOOD
     Route: 048
  14. ACETAMINOPHEN/HYDROCODONE [Concomitant]
     Active Substance: ACETAMINOPHEN\HYDROCODONE
     Indication: PAIN
     Dosage: 7.5/325 MG, AS NEEDED
     Route: 048
  15. AMITIZA [Concomitant]
     Active Substance: LUBIPROSTONE
     Route: 048
  16. ESZOPICLONE. [Concomitant]
     Active Substance: ESZOPICLONE
     Dosage: AT BEDTIME, AS NEEDED
     Route: 048
  17. MUCINEX [Concomitant]
     Active Substance: GUAIFENESIN
     Dosage: AS NEEDED
     Route: 048
  18. TAMIFLU [Suspect]
     Active Substance: OSELTAMIVIR PHOSPHATE
     Indication: INFLUENZA
     Route: 065
     Dates: start: 20180201, end: 20180206
  19. METFORMIN [Concomitant]
     Active Substance: METFORMIN HYDROCHLORIDE
     Dosage: 2 PIIL IN AM AND 2 PIILS IN PM
     Route: 065
  20. ADVAIR HFA [Concomitant]
     Active Substance: FLUTICASONE PROPIONATE\SALMETEROL XINAFOATE
     Dosage: ONE INHALATION TWICE A DAY, 500-50 MCG
     Route: 065
  21. FLUTICASONE. [Concomitant]
     Active Substance: FLUTICASONE
     Dosage: 50 MCG/ACTUATION, TWO SPRAYS IN EACH NOSTRIL DAILY
     Route: 045

REACTIONS (3)
  - Suicide attempt [Unknown]
  - Violence-related symptom [Recovered/Resolved]
  - Suicidal ideation [Unknown]

NARRATIVE: CASE EVENT DATE: 20180210
